FAERS Safety Report 18169309 (Version 1)
Quarter: 2020Q3

REPORT INFORMATION
  Report Type: Spontaneous
  Country: US (occurrence: US)
  Receive Date: 20200819
  Receipt Date: 20200819
  Transmission Date: 20201103
  Serious: Yes (Death)
  Sender: FDA-Public Use
  Company Number: None

PATIENT
  Age: 53 Year
  Sex: Male

DRUGS (4)
  1. BIKTARVY [Suspect]
     Active Substance: BICTEGRAVIR SODIUM\EMTRICITABINE\TENOFOVIR ALAFENAMIDE FUMARATE
  2. METOPROLOL SUCCINATE 100 MG [Concomitant]
     Active Substance: METOPROLOL SUCCINATE
     Dates: start: 20180912
  3. LIPITOR 10 MG [Concomitant]
     Dates: start: 20180912
  4. ASPIRIN 325 MG [Concomitant]
     Active Substance: ASPIRIN
     Dates: start: 20180912

REACTIONS (1)
  - Death [None]
